FAERS Safety Report 18495286 (Version 2)
Quarter: 2021Q4

REPORT INFORMATION
  Report Type: Spontaneous
  Country: US (occurrence: US)
  Receive Date: 20201112
  Receipt Date: 20211224
  Transmission Date: 20220303
  Serious: Yes (Other)
  Sender: FDA-Public Use
  Company Number: US-GW PHARMA-202011USGW03866

PATIENT

DRUGS (12)
  1. EPIDIOLEX [Suspect]
     Active Substance: CANNABIDIOL
     Indication: Lennox-Gastaut syndrome
     Dosage: 130 MILLIGRAM, BID
     Route: 048
     Dates: start: 201908
  2. EPIDIOLEX [Suspect]
     Active Substance: CANNABIDIOL
     Indication: Epilepsy
     Dosage: 160 MILLIGRAM, BID
     Route: 048
  3. EPIDIOLEX [Suspect]
     Active Substance: CANNABIDIOL
     Indication: Seizure
     Dosage: 15.74 MG/KG/DAY, 200 MILLIGRAM, BID, TAKE CONSISTENLY WITH OR WITHOUT FOOD
     Route: 048
  4. EPIDIOLEX [Suspect]
     Active Substance: CANNABIDIOL
     Indication: Partial seizures
  5. EPIDIOLEX [Suspect]
     Active Substance: CANNABIDIOL
     Indication: Epilepsy
  6. EPIDIOLEX [Suspect]
     Active Substance: CANNABIDIOL
     Indication: Focal dyscognitive seizures
  7. CALCIUM\CHOLECALCIFEROL [Concomitant]
     Active Substance: CALCIUM\CHOLECALCIFEROL
     Indication: Product used for unknown indication
     Dosage: 600 MG, 12.5 TABLET ER
     Route: 065
     Dates: start: 20211112
  8. PEPTIDES NOS [Concomitant]
     Indication: Product used for unknown indication
     Dosage: 1.5,0.07 G-1.5 LIQUID
     Route: 065
     Dates: start: 20211112
  9. ELECAR [Concomitant]
     Indication: Product used for unknown indication
     Dosage: 3.1 G/100 POWDER
     Route: 065
     Dates: start: 20211112
  10. DEPAKOTE [Concomitant]
     Active Substance: DIVALPROEX SODIUM
     Indication: Product used for unknown indication
     Dosage: 125 MG TABLETS DR
     Route: 065
     Dates: start: 20190815
  11. TRILEPTAL [Concomitant]
     Active Substance: OXCARBAZEPINE
     Indication: Product used for unknown indication
     Dosage: 300 MG/5 ML ORAL SUSPENSION
     Route: 048
     Dates: start: 20190815
  12. ATIVAN [Concomitant]
     Active Substance: LORAZEPAM
     Indication: Product used for unknown indication
     Dosage: 0.5 MG TABLET
     Route: 065

REACTIONS (4)
  - Seizure [Unknown]
  - Seizure [Unknown]
  - Intentional dose omission [Unknown]
  - Product supply issue [Unknown]
